FAERS Safety Report 14686290 (Version 1)
Quarter: 2018Q1

REPORT INFORMATION
  Report Type: Spontaneous
  Country: US (occurrence: US)
  Receive Date: 20180326
  Receipt Date: 20180326
  Transmission Date: 20180509
  Serious: Yes (Disabling)
  Sender: FDA-Public Use
  Company Number: None

PATIENT
  Age: 52 Year
  Sex: Female
  Weight: 85.5 kg

DRUGS (18)
  1. LEVAQUIN [Suspect]
     Active Substance: LEVOFLOXACIN
     Indication: SINUSITIS
     Dosage: ?          QUANTITY:1 TABLET(S);?
     Route: 048
     Dates: start: 20180220, end: 20180301
  2. CLONIDINE. [Concomitant]
     Active Substance: CLONIDINE
  3. MOBIC [Concomitant]
     Active Substance: MELOXICAM
  4. BAYER 81 MG ASPIRIN [Concomitant]
  5. PERCOCET [Concomitant]
     Active Substance: ACETAMINOPHEN\OXYCODONE HYDROCHLORIDE
  6. MORPHINE SULFER [Concomitant]
  7. ALLEGRA [Concomitant]
     Active Substance: FEXOFENADINE HYDROCHLORIDE
  8. VITAMIN D3 [Concomitant]
     Active Substance: CHOLECALCIFEROL
  9. VITAMIN B12 [Concomitant]
     Active Substance: CYANOCOBALAMIN
  10. SIMVASTATIN. [Concomitant]
     Active Substance: SIMVASTATIN
  11. WELLBUTRIN [Concomitant]
     Active Substance: BUPROPION HYDROCHLORIDE
  12. SYNTHROID [Concomitant]
     Active Substance: LEVOTHYROXINE SODIUM
  13. NB [Concomitant]
  14. TOPIRAMATE. [Concomitant]
     Active Substance: TOPIRAMATE
  15. OMEPRAZOLE DR [Concomitant]
     Active Substance: OMEPRAZOLE
  16. CITRUCIL PHILLIPS FIBER GUMMIES [Concomitant]
  17. ONE A DAY 50+ [Concomitant]
  18. IBUPROFEN. [Concomitant]
     Active Substance: IBUPROFEN

REACTIONS (5)
  - Joint stiffness [None]
  - Arthralgia [None]
  - Gait disturbance [None]
  - Tendon pain [None]
  - Musculoskeletal pain [None]

NARRATIVE: CASE EVENT DATE: 20180220
